FAERS Safety Report 8123964-1 (Version None)
Quarter: 2012Q1

REPORT INFORMATION
  Report Type: 
  Country: None (occurrence: None)
  Receive Date: 20120209
  Receipt Date: 20120131
  Transmission Date: 20120608
  Serious: Yes (Hospitalization, Other)
  Sender: FDA-Public Use
  Company Number: US-JNJFOC-20120201199

PATIENT
  Age: 25 Year
  Sex: Female

DRUGS (11)
  1. LORAZEPAM [Concomitant]
     Indication: ACUTE PSYCHOSIS
     Route: 065
  2. AMPICILLIN [Concomitant]
     Indication: PRODUCT USED FOR UNKNOWN INDICATION
     Route: 042
  3. CEFTRIAXONE [Concomitant]
     Indication: PRODUCT USED FOR UNKNOWN INDICATION
     Route: 042
  4. HALOPERIDOL [Suspect]
     Route: 065
  5. RISPERIDONE [Suspect]
     Indication: ACUTE PSYCHOSIS
     Route: 065
  6. ANTIBIOTIC NOS [Concomitant]
     Indication: PRODUCT USED FOR UNKNOWN INDICATION
     Route: 065
  7. HALOPERIDOL [Suspect]
     Indication: ACUTE PSYCHOSIS
     Route: 065
  8. FERROUS SULFATE TAB [Concomitant]
     Indication: PRODUCT USED FOR UNKNOWN INDICATION
     Route: 065
  9. FOLIC ACID [Concomitant]
     Indication: PRODUCT USED FOR UNKNOWN INDICATION
     Route: 065
  10. MULTI-VITAMINS [Concomitant]
     Indication: PRODUCT USED FOR UNKNOWN INDICATION
     Route: 065
  11. AMOXICILLIN [Concomitant]
     Indication: BETA HAEMOLYTIC STREPTOCOCCAL INFECTION
     Route: 065

REACTIONS (2)
  - NEUROLEPTIC MALIGNANT SYNDROME [None]
  - MATERNAL EXPOSURE DURING PREGNANCY [None]
